FAERS Safety Report 10187114 (Version 1)
Quarter: 2014Q2

REPORT INFORMATION
  Report Type: Spontaneous
  Country: US (occurrence: US)
  Receive Date: 20140522
  Receipt Date: 20140522
  Transmission Date: 20141212
  Serious: No
  Sender: FDA-Public Use
  Company Number: US-BAYER-2014-071123

PATIENT
  Age: 64 Year
  Sex: Female
  Weight: 89.8 kg

DRUGS (8)
  1. BETASERON [Suspect]
     Indication: MULTIPLE SCLEROSIS
     Dosage: UNK
     Dates: end: 20130330
  2. AMPYRA [Suspect]
     Dosage: 10 MG, BID
     Route: 048
  3. DYAZIDE [Concomitant]
  4. LIPITOR [Concomitant]
     Dosage: 10 MG, UNK
  5. POTASSIUM CHLORIDE [Concomitant]
     Dosage: 30 MEQ, UNK
  6. PRILOSEC [Concomitant]
     Dosage: 30 MG, UNK
  7. PROZAC [Concomitant]
     Dosage: 50 MG, UNK
  8. TOPAMAX [Concomitant]

REACTIONS (3)
  - Hypertension [None]
  - Limb discomfort [None]
  - Gait disturbance [None]
